FAERS Safety Report 6206853-9 (Version None)
Quarter: 2009Q2

REPORT INFORMATION
  Report Type: 
  Country: None (occurrence: None)
  Receive Date: 20090528
  Receipt Date: 20090204
  Transmission Date: 20091009
  Serious: No
  Sender: FDA-Public Use
  Company Number: US-AMGEN-US332067

PATIENT
  Sex: Female

DRUGS (3)
  1. NPLATE [Suspect]
     Indication: DRUG USE FOR UNKNOWN INDICATION
     Route: 065
  2. PREDNISONE [Concomitant]
     Route: 065
  3. POLYGAM S/D [Concomitant]
     Route: 065

REACTIONS (2)
  - HOT FLUSH [None]
  - MUSCLE SPASMS [None]
